FAERS Safety Report 8221607-X (Version None)
Quarter: 2012Q1

REPORT INFORMATION
  Report Type: 
  Country: None (occurrence: None)
  Receive Date: 20120315
  Receipt Date: 20120306
  Transmission Date: 20120608
  Serious: Yes (Other)
  Sender: FDA-Public Use
  Company Number: 2012SP012569

PATIENT
  Sex: Male

DRUGS (4)
  1. RIBAVIRIN [Suspect]
     Indication: HEPATITIS C
  2. ZOLOFT [Concomitant]
  3. PEG-INTRON [Suspect]
     Indication: HEPATITIS C
  4. VICTRELIS [Suspect]
     Indication: HEPATITIS C

REACTIONS (5)
  - CONFUSIONAL STATE [None]
  - DEPRESSION [None]
  - FATIGUE [None]
  - SUICIDAL IDEATION [None]
  - IMPAIRED WORK ABILITY [None]
